FAERS Safety Report 15703909 (Version 2)
Quarter: 2019Q1

REPORT INFORMATION
  Report Type: Report from Study
  Country: EG (occurrence: EG)
  Receive Date: 20181210
  Receipt Date: 20190130
  Transmission Date: 20190417
  Serious: Yes (Hospitalization, Other)
  Sender: FDA-Public Use
  Company Number: EG-ROCHE-2109881

PATIENT
  Sex: Female
  Weight: 72 kg

DRUGS (9)
  1. ESBRIET [Suspect]
     Active Substance: PIRFENIDONE
     Indication: IDIOPATHIC PULMONARY FIBROSIS
     Dosage: 801 MG/ PACK
     Route: 048
     Dates: start: 20180220, end: 20180415
  2. ESBRIET [Suspect]
     Active Substance: PIRFENIDONE
     Dosage: 801 MG/ PACK
     Route: 048
     Dates: end: 20180415
  3. ESBRIET [Suspect]
     Active Substance: PIRFENIDONE
     Indication: IDIOPATHIC PULMONARY FIBROSIS
     Route: 048
     Dates: start: 20181009
  4. GYNERA [Concomitant]
     Active Substance: ETHINYL ESTRADIOL\GESTODENE
     Indication: CONTRACEPTION
     Dosage: 1/DAY FOR 21 DAYS AND STOP FOR 1 WEEK
     Route: 065
     Dates: start: 1998
  5. ESBRIET [Suspect]
     Active Substance: PIRFENIDONE
     Dosage: 801 MG/ PACK
     Route: 048
     Dates: start: 20180513, end: 201807
  6. ESBRIET [Suspect]
     Active Substance: PIRFENIDONE
     Dosage: 801 MG/ PACK
     Route: 048
  7. ESBRIET [Suspect]
     Active Substance: PIRFENIDONE
     Route: 048
     Dates: start: 201806
  8. ESBRIET [Suspect]
     Active Substance: PIRFENIDONE
     Dosage: 801MG/PACK
     Route: 048
     Dates: start: 20181128
  9. ESBRIET [Suspect]
     Active Substance: PIRFENIDONE
     Route: 048
     Dates: end: 201807

REACTIONS (24)
  - Pneumothorax [Unknown]
  - Mitral valve prolapse [Unknown]
  - Pruritus generalised [Unknown]
  - Disturbance in attention [Not Recovered/Not Resolved]
  - Pneumonia [Not Recovered/Not Resolved]
  - Pleural effusion [Unknown]
  - Vomiting [Not Recovered/Not Resolved]
  - Hypoaesthesia [Unknown]
  - Yawning [Unknown]
  - Fatigue [Not Recovered/Not Resolved]
  - Headache [Not Recovered/Not Resolved]
  - Weight decreased [Unknown]
  - Dizziness [Not Recovered/Not Resolved]
  - Nervousness [Not Recovered/Not Resolved]
  - Nausea [Not Recovered/Not Resolved]
  - Vitamin D decreased [Unknown]
  - Dyspnoea at rest [Unknown]
  - Heart rate increased [Unknown]
  - Dyspnoea [Unknown]
  - Sputum increased [Unknown]
  - Myocardial ischaemia [Unknown]
  - Dyspepsia [Not Recovered/Not Resolved]
  - Peripheral swelling [Unknown]
  - Off label use [Unknown]

NARRATIVE: CASE EVENT DATE: 20180220
